FAERS Safety Report 22199578 (Version 1)
Quarter: 2023Q2

REPORT INFORMATION
  Report Type: Spontaneous
  Country: US (occurrence: US)
  Receive Date: 20230412
  Receipt Date: 20230412
  Transmission Date: 20230721
  Serious: Yes (Hospitalization, Other)
  Sender: FDA-Public Use
  Company Number: US-drreddys-LIT/USA/23/0163543

PATIENT
  Age: 52 Year
  Sex: Female

DRUGS (15)
  1. DOXORUBICIN [Suspect]
     Active Substance: DOXORUBICIN
     Indication: Diffuse large B-cell lymphoma
     Dosage: R-CHOP CHEMOTHERAPY BEFORE 11 YEARS
  2. LENALIDOMIDE [Suspect]
     Active Substance: LENALIDOMIDE
     Indication: Diffuse large B-cell lymphoma
     Dosage: CYCLE 1 WAS INTERRUPTED
  3. LENALIDOMIDE [Suspect]
     Active Substance: LENALIDOMIDE
     Dosage: CYCLE 2
  4. RITUXIMAB [Suspect]
     Active Substance: RITUXIMAB
     Indication: Diffuse large B-cell lymphoma
     Dosage: R-CHOP CHEMOTHERAPY BEFORE 11 YEARS BEFORE 11 YEARS?ACHIEVED COMPLETE RESPONSE
  5. RITUXIMAB [Suspect]
     Active Substance: RITUXIMAB
     Dosage: R-ICE SALVAGE
  6. PREDNISONE [Suspect]
     Active Substance: PREDNISONE
     Indication: Diffuse large B-cell lymphoma
     Dosage: R-CHOP CHEMOTHERAPY BEFORE 11 YEARS
  7. VINCRISTINE [Suspect]
     Active Substance: VINCRISTINE
     Indication: Diffuse large B-cell lymphoma
     Dosage: R-CHOP CHEMOTHERAPY BEFORE 11 YEARS
  8. CYCLOPHOSPHAMIDE [Suspect]
     Active Substance: CYCLOPHOSPHAMIDE
     Indication: Diffuse large B-cell lymphoma
     Dosage: R-CHOP CHEMOTHERAPY BEFORE 11 YEARS
  9. CYCLOPHOSPHAMIDE [Suspect]
     Active Substance: CYCLOPHOSPHAMIDE
     Dosage: ON DAYS -5, -4, AND -3
  10. IFOSFAMIDE [Suspect]
     Active Substance: IFOSFAMIDE
     Indication: Diffuse large B-cell lymphoma
     Dosage: R-ICE SALVAGE
  11. NIVOLUMAB [Suspect]
     Active Substance: NIVOLUMAB
     Indication: Diffuse large B-cell lymphoma
     Dosage: FOR 8  WEEKS
  12. TAFASITAMAB [Suspect]
     Active Substance: TAFASITAMAB
     Indication: Diffuse large B-cell lymphoma
     Dosage: CYCLE 1 WAS INTERRUPTED
  13. TAFASITAMAB [Suspect]
     Active Substance: TAFASITAMAB
     Dosage: CYCLE 2
  14. CARBOPLATIN [Suspect]
     Active Substance: CARBOPLATIN
     Indication: Diffuse large B-cell lymphoma
     Dosage: R-ICE SALVAGE
  15. ETOPOSIDE [Suspect]
     Active Substance: ETOPOSIDE
     Indication: Diffuse large B-cell lymphoma
     Dosage: R-ICE SALVAGE

REACTIONS (10)
  - Encephalopathy [Recovered/Resolved]
  - Immune-mediated enterocolitis [Unknown]
  - Renal failure [Unknown]
  - Cardiomyopathy [Recovered/Resolved]
  - Diffuse large B-cell lymphoma recurrent [Unknown]
  - Diffuse large B-cell lymphoma [Unknown]
  - Malignant neoplasm progression [Unknown]
  - Rash [Unknown]
  - Pneumonitis [Unknown]
  - Product use in unapproved indication [Unknown]
